FAERS Safety Report 16320344 (Version 3)
Quarter: 2020Q4

REPORT INFORMATION
  Report Type: Spontaneous
  Country: US (occurrence: US)
  Receive Date: 20190516
  Receipt Date: 20201005
  Transmission Date: 20210113
  Serious: Yes (Disabling)
  Sender: FDA-Public Use
  Company Number: US-PFIZER INC-2019208362

PATIENT
  Age: 51 Year
  Sex: Female
  Weight: 136.08 kg

DRUGS (3)
  1. CELEBREX [Suspect]
     Active Substance: CELECOXIB
     Indication: ARTHRITIS
  2. CELEBREX [Suspect]
     Active Substance: CELECOXIB
     Indication: STENOSIS
  3. CELEBREX [Suspect]
     Active Substance: CELECOXIB
     Indication: SPINAL OSTEOARTHRITIS
     Dosage: 200 MG, DAILY
     Route: 048
     Dates: start: 2005

REACTIONS (4)
  - Poor quality product administered [Unknown]
  - Product storage error [Unknown]
  - Idiopathic urticaria [Unknown]
  - Prescription drug used without a prescription [Unknown]
